FAERS Safety Report 24354440 (Version 1)
Quarter: 2024Q3

REPORT INFORMATION
  Report Type: Spontaneous
  Country: NO (occurrence: NO)
  Receive Date: 20240923
  Receipt Date: 20240923
  Transmission Date: 20241017
  Serious: Yes (Death, Hospitalization, Other)
  Sender: MYLAN
  Company Number: NO-MYLANLABS-2024M1085856

PATIENT
  Age: 85 Year
  Sex: Female

DRUGS (4)
  1. CELEBRA [Suspect]
     Active Substance: CELECOXIB
     Indication: Analgesic therapy
     Dosage: UNK
     Route: 065
     Dates: start: 202306
  2. CLINDAMYCIN [Suspect]
     Active Substance: CLINDAMYCIN
     Indication: Antibiotic prophylaxis
     Dosage: 600 MILLIGRAM (600 MG X 3)
     Route: 065
     Dates: start: 202306
  3. CORTISONE [Concomitant]
     Active Substance: CORTISONE
     Indication: Pain
     Dosage: UNK
     Route: 065
     Dates: start: 20220614
  4. ACETAMINOPHEN [Concomitant]
     Active Substance: ACETAMINOPHEN
     Indication: Pain
     Dosage: 2 GRAM, QD
     Route: 065
     Dates: start: 202306

REACTIONS (14)
  - Death [Fatal]
  - Abdominal abscess [Unknown]
  - Peritonitis [Unknown]
  - Ileus paralytic [Unknown]
  - Dyspnoea [Unknown]
  - Rash [Unknown]
  - Cardiac failure [Unknown]
  - Toxic epidermal necrolysis [Unknown]
  - Acute kidney injury [Unknown]
  - Stevens-Johnson syndrome [Unknown]
  - Arrhythmia [Unknown]
  - Decubitus ulcer [Unknown]
  - Fistula [Unknown]
  - Oedema [Unknown]

NARRATIVE: CASE EVENT DATE: 20230601
